FAERS Safety Report 4897954-6 (Version None)
Quarter: 2006Q1

REPORT INFORMATION
  Report Type: 
  Country: None (occurrence: None)
  Receive Date: 20060130
  Receipt Date: 20060112
  Transmission Date: 20060701
  Serious: Yes (Hospitalization)
  Sender: FDA-Public Use
  Company Number: 220903

PATIENT
  Age: 52 Year
  Sex: Female
  Weight: 47.5 kg

DRUGS (6)
  1. AVASTIN [Suspect]
     Indication: COLON CANCER
     Dosage: 367 MG, Q3W, INTRAVENOUS
     Route: 042
     Dates: start: 20051026
  2. CAPECITABINE (CAPECITABINE) [Suspect]
     Indication: COLON CANCER
     Dosage: 1.5 G, BID, ORAL
     Route: 048
     Dates: start: 20051026
  3. OXALIPLATIN (OXALIPLATIN) [Suspect]
     Indication: COLON CANCER
     Dosage: 185 MG, Q3W, INTRAVENOUS
     Route: 042
     Dates: start: 20051026
  4. TELMISARTAN (TELMISARTAN) [Concomitant]
  5. LERCANIDIPINE [Concomitant]
  6. METOCLOPRAMIDE (METOCLOPRAMIDE HYDROCHLORIDE) [Concomitant]

REACTIONS (1)
  - ENTERITIS [None]
